FAERS Safety Report 8545304-6 (Version None)
Quarter: 2012Q3

REPORT INFORMATION
  Report Type: 
  Country: None (occurrence: None)
  Receive Date: 20120727
  Receipt Date: 20120719
  Transmission Date: 20120928
  Serious: Yes (Life-Threatening)
  Sender: FDA-Public Use
  Company Number: JP-AMGEN-JPNCT2012046838

PATIENT
  Age: 80 Year
  Sex: Male
  Weight: 62 kg

DRUGS (20)
  1. DARBEPOETIN ALFA - KHK [Suspect]
     Dosage: 60 MUG, QD
     Route: 058
     Dates: start: 20111017, end: 20111017
  2. MEROPENEM [Concomitant]
     Dosage: UNCERTAINTY
     Route: 041
  3. AKINETON [Concomitant]
     Dosage: UNCERTAINTY
     Route: 030
  4. LANTUS [Concomitant]
     Indication: DIABETIC NEPHROPATHY
     Dosage: UNCERTAINTY
     Route: 058
  5. AMLODIPINE [Concomitant]
     Dosage: UNCERTAINTY
     Route: 048
  6. ALLOPURINOL [Concomitant]
     Dosage: UNCERTAINTY
     Route: 048
  7. PLAVIX [Concomitant]
     Dosage: UNCERTAINTY
     Route: 048
  8. LASIX [Concomitant]
     Dosage: UNCERTAINTY
     Route: 048
  9. GLAKAY [Concomitant]
     Dosage: UNCERTAINTY
     Route: 048
  10. NITRODERM [Concomitant]
     Dosage: UNCERTAINTY
     Route: 062
  11. TOYOFAROL [Concomitant]
     Dosage: UNCERTAINTY
     Route: 048
  12. DOXAZOSIN MESYLATE [Concomitant]
     Dosage: UNCERTAINTY
     Route: 048
  13. LENDORMIN [Concomitant]
     Dosage: UNCERTAINTY
     Route: 048
  14. OMEPRAZOLE [Concomitant]
     Dosage: UNCERTAINTY
     Route: 048
  15. PRIMOBOLAN-DEPOT INJ [Concomitant]
     Dosage: UNCERTAINTY
     Route: 048
  16. DARBEPOETIN ALFA - KHK [Suspect]
     Dosage: 90 MUG, QD
     Route: 058
     Dates: start: 20111211, end: 20111211
  17. NOVOLIN R [Concomitant]
     Indication: DIABETIC NEPHROPATHY
     Dosage: UNCERTAINTY
     Route: 058
  18. DORIPENEM MONOHYDRATE [Concomitant]
     Dosage: UNCERTAINTY
     Route: 041
  19. DARBEPOETIN ALFA - KHK [Suspect]
     Indication: NEPHROGENIC ANAEMIA
     Dosage: 30 UNK, UNK
     Route: 058
     Dates: start: 20110902
  20. DARBEPOETIN ALFA - KHK [Suspect]
     Dosage: 90 MUG, QD
     Route: 058
     Dates: start: 20111124, end: 20111124

REACTIONS (4)
  - ARRHYTHMIA [None]
  - RESTLESSNESS [None]
  - HYPERKALAEMIA [None]
  - PNEUMONIA [None]
